FAERS Safety Report 6168951-8 (Version None)
Quarter: 2009Q2

REPORT INFORMATION
  Report Type: 
  Country: None (occurrence: None)
  Receive Date: 20090427
  Receipt Date: 20090421
  Transmission Date: 20091009
  Serious: Yes (Hospitalization)
  Sender: FDA-Public Use
  Company Number: US-JNJFOC-20090300783

PATIENT
  Sex: Male
  Weight: 95.26 kg

DRUGS (6)
  1. DURAGESIC-100 [Suspect]
     Route: 062
  2. DURAGESIC-100 [Suspect]
     Route: 062
  3. DURAGESIC-100 [Suspect]
     Indication: PAIN
     Route: 062
  4. UNSPECIFIED MEDICATION [Suspect]
     Indication: ADVERSE DRUG REACTION
     Route: 065
  5. METHADONE [Concomitant]
     Indication: PAIN
     Route: 048
  6. MORPHINE [Concomitant]
     Indication: PAIN
     Route: 048

REACTIONS (7)
  - AGGRESSION [None]
  - FATIGUE [None]
  - HYPERHIDROSIS [None]
  - IMPAIRED DRIVING ABILITY [None]
  - INAPPROPRIATE SCHEDULE OF DRUG ADMINISTRATION [None]
  - LOSS OF CONSCIOUSNESS [None]
  - ULNAR NERVE INJURY [None]
